FAERS Safety Report 22040463 (Version 2)
Quarter: 2024Q2

REPORT INFORMATION
  Report Type: Spontaneous
  Country: US (occurrence: US)
  Receive Date: 20230227
  Receipt Date: 20240508
  Transmission Date: 20240716
  Serious: Yes (Other)
  Sender: FDA-Public Use
  Company Number: US-SA-SAC20230224000877

PATIENT
  Age: 4 Year
  Sex: Male

DRUGS (2)
  1. DUPIXENT [Suspect]
     Active Substance: DUPILUMAB
     Indication: Dermatitis atopic
     Dosage: 300 MG, Q4W
     Route: 058
     Dates: start: 202209
  2. DUPIXENT [Suspect]
     Active Substance: DUPILUMAB
     Dosage: 200 MG, QOW
     Route: 058

REACTIONS (5)
  - Croup infectious [Unknown]
  - Cough [Recovering/Resolving]
  - Influenza [Unknown]
  - Drug effect less than expected [Unknown]
  - Off label use [Unknown]

NARRATIVE: CASE EVENT DATE: 20221201
